FAERS Safety Report 9917366 (Version 2)
Quarter: 2014Q1

REPORT INFORMATION
  Report Type: Report from Study
  Country: CA (occurrence: CA)
  Receive Date: 20140221
  Receipt Date: 20140221
  Transmission Date: 20141002
  Serious: Yes (Hospitalization)
  Sender: FDA-Public Use
  Company Number: CA-BRISTOL-MYERS SQUIBB COMPANY-19696137

PATIENT
  Age: 61 Year
  Sex: Female

DRUGS (2)
  1. ORENCIA [Suspect]
     Indication: RHEUMATOID ARTHRITIS
     Dosage: 1DF=750 UNITS NOS.?ONGOING?EXP:JUL2016
     Dates: start: 20120926
  2. ADVIL [Concomitant]

REACTIONS (4)
  - Dyspnoea [Unknown]
  - Cough [Unknown]
  - Flank pain [Unknown]
  - Urinary tract infection [Unknown]
